FAERS Safety Report 19670179 (Version 1)
Quarter: 2021Q3

REPORT INFORMATION
  Report Type: Spontaneous
  Country: ET (occurrence: ET)
  Receive Date: 20210806
  Receipt Date: 20210806
  Transmission Date: 20211014
  Serious: Yes (Death, Other)
  Sender: FDA-Public Use
  Company Number: ET-BRISTOL-MYERS SQUIBB COMPANY-BMS-2021-077109

PATIENT
  Age: 28 Year
  Sex: Male

DRUGS (1)
  1. SPRYCEL [Suspect]
     Active Substance: DASATINIB
     Indication: CHRONIC MYELOID LEUKAEMIA
     Dosage: 140MG (2 X 70MG)
     Route: 065

REACTIONS (1)
  - Death [Fatal]
